FAERS Safety Report 4747586-5 (Version None)
Quarter: 2005Q3

REPORT INFORMATION
  Report Type: 
  Country: None (occurrence: None)
  Receive Date: 20050818
  Receipt Date: 20041013
  Transmission Date: 20060218
  Serious: No
  Sender: FDA-Public Use
  Company Number: US-BRISTOL-MYERS SQUIBB COMPANY-12731048

PATIENT
  Age: 74 Year
  Sex: Female

DRUGS (12)
  1. TEQUIN [Suspect]
     Indication: PNEUMONIA
     Route: 048
     Dates: start: 20041008, end: 20041008
  2. AVAPRO [Concomitant]
  3. ALDACTONE [Concomitant]
  4. COMBIVENT [Concomitant]
     Route: 055
  5. DESYREL [Concomitant]
  6. DIGOXIN [Concomitant]
  7. FLOVENT [Concomitant]
     Dosage: 220 MCG
  8. GLUCOVANCE [Concomitant]
     Dosage: DOSE 5/500 MG
  9. NEXIUM [Concomitant]
  10. SERTRALINE HCL [Concomitant]
  11. VICODIN [Concomitant]
  12. FERROUS SULFATE TAB [Concomitant]

REACTIONS (3)
  - ANXIETY [None]
  - DISORIENTATION [None]
  - EMOTIONAL DISORDER [None]
